FAERS Safety Report 7214256-3 (Version None)
Quarter: 2010Q4

REPORT INFORMATION
  Report Type: 
  Country: None (occurrence: None)
  Receive Date: 20101126
  Receipt Date: 20100803
  Transmission Date: 20110411
  Serious: Yes (Disabling)
  Sender: FDA-Public Use
  Company Number: WAES 1008USA00399

PATIENT
  Sex: Female

DRUGS (2)
  1. FOSAMAX [Suspect]
     Dosage: PO
     Route: 048
  2. ACTONEL [Suspect]

REACTIONS (1)
  - OSTEONECROSIS OF JAW [None]
